FAERS Safety Report 17905508 (Version 1)
Quarter: 2020Q2

REPORT INFORMATION
  Report Type: Spontaneous
  Country: US (occurrence: US)
  Receive Date: 20200616
  Receipt Date: 20200616
  Transmission Date: 20200714
  Serious: Yes (Other)
  Sender: FDA-Public Use
  Company Number: None

PATIENT
  Age: 45 Year
  Sex: Male
  Weight: 168.2 kg

DRUGS (11)
  1. INSULIN GLARGINE 35 UNITS SUBCUT BID [Concomitant]
     Dates: start: 20200606
  2. NIFEDIPINE ER 60MG DAILY [Concomitant]
     Dates: start: 20200613
  3. DAPTOMYCIN 700MG IV Q24H [Concomitant]
     Dates: start: 20200612, end: 20200615
  4. INSULIN LISPRO SLIDING SCALE [Concomitant]
     Dates: start: 20200607
  5. HYDROMORPHONE 1MG PRN [Concomitant]
     Dates: start: 20200609
  6. CARVEDILOL 12.5MG PO BID [Concomitant]
     Dates: start: 20200614
  7. LINEZOLID 600MG IV Q12H [Concomitant]
     Dates: start: 20200615
  8. REMDESIVIR. [Suspect]
     Active Substance: REMDESIVIR
     Indication: COVID-19
     Dosage: ?          OTHER FREQUENCY:ONCE;?
     Route: 041
     Dates: start: 20200615, end: 20200616
  9. ATORVASTATIN 10MG PO QBEDTIME [Concomitant]
     Dates: start: 20200606
  10. CEFEPIME 2G IV Q12H [Concomitant]
     Dates: start: 20200614
  11. HEPARIN [Concomitant]
     Active Substance: HEPARIN SODIUM
     Dates: start: 20200607

REACTIONS (1)
  - Renal impairment [None]

NARRATIVE: CASE EVENT DATE: 20200616
